FAERS Safety Report 24982526 (Version 4)
Quarter: 2025Q2

REPORT INFORMATION
  Report Type: Spontaneous
  Country: US (occurrence: US)
  Receive Date: 20250218
  Receipt Date: 20250624
  Transmission Date: 20250717
  Serious: Yes (Other)
  Sender: PFIZER
  Company Number: US-PFIZER INC-202500034221

PATIENT
  Age: 56 Year
  Sex: Female

DRUGS (1)
  1. TUKYSA [Suspect]
     Active Substance: TUCATINIB
     Indication: HER2 positive breast cancer
     Dosage: TAKE TWO 150MG TABLETS BY MOUTH TWICE DAILY
     Route: 048
     Dates: end: 20250617

REACTIONS (4)
  - HER2 positive breast cancer [Unknown]
  - Metastases to ovary [Recovering/Resolving]
  - Malignant neoplasm progression [Unknown]
  - Throat clearing [Unknown]
